FAERS Safety Report 8026223-0 (Version None)
Quarter: 2012Q1

REPORT INFORMATION
  Report Type: 
  Country: None (occurrence: None)
  Receive Date: 20120105
  Receipt Date: 20110303
  Transmission Date: 20120608
  Serious: No
  Sender: FDA-Public Use
  Company Number: US-ABBOTT-11P-163-0709878-00

PATIENT
  Sex: Male
  Weight: 83.082 kg

DRUGS (2)
  1. SYNTHROID [Suspect]
     Indication: METABOLIC SYNDROME
     Dates: start: 20110101
  2. MICARDIS HCT [Concomitant]
     Indication: HYPERTENSION

REACTIONS (1)
  - WEIGHT DECREASED [None]
